FAERS Safety Report 4999084-1 (Version None)
Quarter: 2006Q2

REPORT INFORMATION
  Report Type: 
  Country: None (occurrence: None)
  Receive Date: 20060509
  Receipt Date: 20060427
  Transmission Date: 20061013
  Serious: Yes (Hospitalization, Other)
  Sender: FDA-Public Use
  Company Number: US200604004552

PATIENT
  Age: 57 Year
  Sex: Female

DRUGS (2)
  1. CYMBALTA [Suspect]
     Dosage: 30 MG
     Dates: start: 20060201, end: 20060201
  2. NARDIL [Concomitant]

REACTIONS (3)
  - HERNIA REPAIR [None]
  - SEROTONIN SYNDROME [None]
  - STOMACH DISCOMFORT [None]
